FAERS Safety Report 4478368-X (Version None)
Quarter: 2004Q3

REPORT INFORMATION
  Report Type: 
  Country: None (occurrence: None)
  Receive Date: 20040923
  Receipt Date: 20040624
  Transmission Date: 20050211
  Serious: No
  Sender: FDA-Public Use
  Company Number: USA040670983

PATIENT
  Age: 49 Year
  Sex: Female

DRUGS (2)
  1. FORTEO [Suspect]
     Dates: start: 20040613, end: 20040619
  2. DIURETIC [Concomitant]

REACTIONS (4)
  - HEART RATE INCREASED [None]
  - MUSCULAR WEAKNESS [None]
  - NAUSEA [None]
  - RETCHING [None]
